FAERS Safety Report 9603303 (Version 1)
Quarter: 2013Q4

REPORT INFORMATION
  Report Type: Report from Study
  Country: DK (occurrence: DK)
  Receive Date: 20131007
  Receipt Date: 20131007
  Transmission Date: 20140711
  Serious: Yes (Other)
  Sender: FDA-Public Use
  Company Number: DK-TEVA-433966ISR

PATIENT
  Sex: Female

DRUGS (6)
  1. LEVETIRACETAM [Suspect]
     Indication: EPILEPSY
     Dosage: DAILY DOSE: 2500
  2. LEVETIRACETAM [Suspect]
     Indication: EPILEPSY
     Dosage: DAILY DOSE: 2500
  3. CLOBAZAM [Concomitant]
     Indication: EPILEPSY
  4. CLOBAZAM [Concomitant]
     Indication: EPILEPSY
  5. LAMOTRIGINE [Concomitant]
     Indication: EPILEPSY
  6. LAMOTRIGINE [Concomitant]
     Indication: EPILEPSY

REACTIONS (2)
  - Abortion spontaneous [Unknown]
  - Pregnancy [Recovered/Resolved]
